FAERS Safety Report 16463529 (Version 2)
Quarter: 2019Q2

REPORT INFORMATION
  Report Type: Report from Study
  Country: CA (occurrence: CA)
  Receive Date: 20190621
  Receipt Date: 20190627
  Transmission Date: 20190711
  Serious: Yes (Other)
  Sender: FDA-Public Use
  Company Number: CA-BEH-2019103351

PATIENT
  Age: 80 Year
  Sex: Male

DRUGS (7)
  1. HIZENTRA [Suspect]
     Active Substance: HUMAN IMMUNOGLOBULIN G
     Indication: CHRONIC LYMPHOCYTIC LEUKAEMIA
     Dosage: 7 GRAM, TOT
     Route: 058
     Dates: start: 20190611, end: 20190611
  2. NEUPOGEN [Concomitant]
     Active Substance: FILGRASTIM
  3. HIZENTRA [Suspect]
     Active Substance: HUMAN IMMUNOGLOBULIN G
     Indication: SECONDARY IMMUNODEFICIENCY
     Dosage: 7 GRAM, QW
     Route: 058
     Dates: start: 20160830
  4. IMBRUVICA [Concomitant]
     Active Substance: IBRUTINIB
  5. DEXAMETHASONE. [Concomitant]
     Active Substance: DEXAMETHASONE
  6. ALLOPURINOL. [Concomitant]
     Active Substance: ALLOPURINOL
  7. VITAMIN B12 [Concomitant]
     Active Substance: CYANOCOBALAMIN

REACTIONS (5)
  - Infected cyst [Unknown]
  - Osteoarthritis [Unknown]
  - Infusion site swelling [Unknown]
  - Infusion site erythema [Unknown]
  - Finger deformity [Not Recovered/Not Resolved]

NARRATIVE: CASE EVENT DATE: 20190611
